FAERS Safety Report 18898824 (Version 1)
Quarter: 2021Q1

REPORT INFORMATION
  Report Type: Other
  Country: US (occurrence: US)
  Receive Date: 20210216
  Receipt Date: 20210216
  Transmission Date: 20210420
  Serious: Yes (Other)
  Sender: FDA-Public Use
  Company Number: US-ROCHE-2769194

PATIENT
  Sex: Female

DRUGS (1)
  1. XOLAIR [Suspect]
     Active Substance: OMALIZUMAB
     Indication: URTICARIA
     Route: 065

REACTIONS (6)
  - Dysphagia [Unknown]
  - Angioedema [Unknown]
  - Panic attack [Unknown]
  - Anaphylactic reaction [Unknown]
  - Off label use [Unknown]
  - Intentional product use issue [Unknown]
